FAERS Safety Report 17023039 (Version 3)
Quarter: 2019Q4

REPORT INFORMATION
  Report Type: Spontaneous
  Country: JP (occurrence: JP)
  Receive Date: 20191112
  Receipt Date: 20191230
  Transmission Date: 20200122
  Serious: Yes (Hospitalization, Other)
  Sender: FDA-Public Use
  Company Number: JP-009507513-1911JPN003879

PATIENT
  Age: 27 Year
  Sex: Female

DRUGS (7)
  1. BONALON [Suspect]
     Active Substance: ALENDRONATE SODIUM
     Indication: PROPHYLAXIS
     Dosage: 35 MILLIGRAM PER WEEK
     Route: 048
     Dates: start: 20191104, end: 20191104
  2. DAIPHEN [Suspect]
     Active Substance: SULFAMETHOXAZOLE\TRIMETHOPRIM
     Indication: PROPHYLAXIS
     Dosage: 1 DOSAGE FORM
     Route: 048
     Dates: start: 20191028, end: 20191116
  3. TAKECAB [Concomitant]
     Active Substance: VONOPRAZAN FUMURATE
     Indication: GASTROOESOPHAGEAL REFLUX DISEASE
     Dosage: 20 MILLIGRAM PER DAY
     Route: 048
     Dates: start: 20191008
  4. PREDONINE [Concomitant]
     Active Substance: PREDNISOLONE
     Indication: POLYMYOSITIS
     Dosage: 100 MILLIGRAM PER DAY
     Route: 048
     Dates: start: 20191016
  5. PREDONINE [Concomitant]
     Active Substance: PREDNISOLONE
     Indication: SYSTEMIC LUPUS ERYTHEMATOSUS
  6. MOSAPRIDE CITRATE [Concomitant]
     Active Substance: MOSAPRIDE CITRATE
     Dosage: 15 MILLIGRAM PER DAY
     Route: 048
  7. REBAMIPIDE [Concomitant]
     Active Substance: REBAMIPIDE
     Dosage: 300 MILLIGRAM PER DAY
     Route: 048

REACTIONS (5)
  - Acute phase reaction [Recovering/Resolving]
  - Abdominal discomfort [Recovering/Resolving]
  - C-reactive protein increased [Not Recovered/Not Resolved]
  - Cytopenia [Not Recovered/Not Resolved]
  - Hepatic function abnormal [Not Recovered/Not Resolved]

NARRATIVE: CASE EVENT DATE: 20191104
